FAERS Safety Report 8222119-X (Version None)
Quarter: 2012Q1

REPORT INFORMATION
  Report Type: 
  Country: None (occurrence: None)
  Receive Date: 20120320
  Receipt Date: 20120316
  Transmission Date: 20120608
  Serious: Yes (Death, Life-Threatening, Hospitalization)
  Sender: FDA-Public Use
  Company Number: US-MERCK-1203USA01752

PATIENT
  Age: 82 Year
  Sex: Female

DRUGS (2)
  1. VELCADE [Concomitant]
     Route: 065
  2. ZOLINZA [Suspect]
     Indication: MULTIPLE MYELOMA
     Route: 048
     Dates: start: 20111216, end: 20120201

REACTIONS (3)
  - NEUTROPENIA [None]
  - THROMBOCYTOPENIA [None]
  - MULTIPLE MYELOMA [None]
